FAERS Safety Report 5910607-8 (Version None)
Quarter: 2008Q4

REPORT INFORMATION
  Report Type: 
  Country: None (occurrence: None)
  Receive Date: 20081007
  Receipt Date: 20081001
  Transmission Date: 20090506
  Serious: Yes (Other)
  Sender: FDA-Public Use
  Company Number: B0540136A

PATIENT
  Sex: Female

DRUGS (1)
  1. NICORETTE [Suspect]
     Dosage: 180MG PER DAY
     Route: 002
     Dates: start: 20030101, end: 20080501

REACTIONS (5)
  - GINGIVAL DISORDER [None]
  - INCORRECT DRUG ADMINISTRATION DURATION [None]
  - MASTICATION DISORDER [None]
  - MENTAL DISORDER [None]
  - OVERDOSE [None]
